FAERS Safety Report 9689870 (Version 1)
Quarter: 2013Q4

REPORT INFORMATION
  Report Type: Spontaneous
  Country: US (occurrence: US)
  Receive Date: 20131115
  Receipt Date: 20131115
  Transmission Date: 20140711
  Serious: Yes (Other)
  Sender: FDA-Public Use
  Company Number: US-PFIZER INC-2013325651

PATIENT
  Sex: Male

DRUGS (3)
  1. CHANTIX [Suspect]
     Indication: SMOKING CESSATION THERAPY
     Dosage: 0.5 MG, 1X/DAY
     Route: 048
     Dates: start: 20131030, end: 2013
  2. CHANTIX [Suspect]
     Dosage: UNK
     Route: 048
     Dates: start: 2013, end: 20131106
  3. CLONAZEPAM [Concomitant]
     Dosage: UNK

REACTIONS (2)
  - Coronary artery disease [Recovering/Resolving]
  - Hallucination, visual [Not Recovered/Not Resolved]
